FAERS Safety Report 20290731 (Version 1)
Quarter: 2022Q1

REPORT INFORMATION
  Report Type: Spontaneous
  Country: US (occurrence: US)
  Receive Date: 20220104
  Receipt Date: 20220104
  Transmission Date: 20220423
  Serious: No
  Sender: FDA-Public Use
  Company Number: US-GALDERMA-US2021019683

PATIENT

DRUGS (3)
  1. DIFFERIN [Suspect]
     Active Substance: ADAPALENE
     Indication: Acne
     Dosage: 1 DOSAGE FORM, QD, DAILY (USED TOTAL 3 TIMES)
     Route: 061
     Dates: start: 20211205, end: 20211207
  2. COSMETICS [Concomitant]
     Active Substance: COSMETICS
     Indication: Product used for unknown indication
     Dosage: UNKNOWN
     Route: 061
  3. Cerave Daily Moisturizing Lotion [Concomitant]
     Indication: Product used for unknown indication
     Dosage: UNKNOWN
     Route: 061

REACTIONS (2)
  - Skin burning sensation [Recovered/Resolved]
  - Skin exfoliation [Not Recovered/Not Resolved]

NARRATIVE: CASE EVENT DATE: 20211206
